FAERS Safety Report 7024733-6 (Version None)
Quarter: 2010Q3

REPORT INFORMATION
  Report Type: 
  Country: None (occurrence: None)
  Receive Date: 20100929
  Receipt Date: 20100922
  Transmission Date: 20110219
  Serious: Yes (Hospitalization)
  Sender: FDA-Public Use
  Company Number: A-CH2010-40027

PATIENT
  Age: 82 Year
  Sex: Female
  Weight: 49 kg

DRUGS (9)
  1. TRACLEER [Suspect]
     Indication: PULMONARY ARTERIAL HYPERTENSION
     Dosage: 62.5 MG, BID, ORAL; 62.5 MG, BID, ORAL
     Route: 048
     Dates: start: 20070907, end: 20090326
  2. TRACLEER [Suspect]
     Indication: PULMONARY ARTERIAL HYPERTENSION
     Dosage: 62.5 MG, BID, ORAL; 62.5 MG, BID, ORAL
     Route: 048
     Dates: start: 20090327
  3. BERAPROST SODIUM (BERAPROST SODIUM) [Concomitant]
  4. TORSEMIDE [Concomitant]
  5. TOCOPHERYL ACETATE (TOCOPHERYL ACETATE) [Concomitant]
  6. ASCORBIC ACID W/CALCIUM (ASCORBIC ACID, CALCIUM) [Concomitant]
  7. LANSOPRAZOLE [Concomitant]
  8. LAFUTIDINE (LAFUTIDINE) [Concomitant]
  9. FEXOFENADINE HYDROCHLORIDE [Concomitant]

REACTIONS (4)
  - ARTERIOSCLEROSIS OBLITERANS [None]
  - CONDITION AGGRAVATED [None]
  - DIZZINESS [None]
  - SCLERODERMA [None]
